FAERS Safety Report 5729073-0 (Version None)
Quarter: 2008Q2

REPORT INFORMATION
  Report Type: 
  Country: None (occurrence: None)
  Receive Date: 20080505
  Receipt Date: 20080505
  Transmission Date: 20081010
  Serious: Yes (Other)
  Sender: FDA-Public Use
  Company Number: None

PATIENT
  Age: 82 Year
  Sex: Female
  Weight: 68.9467 kg

DRUGS (2)
  1. DIGOXIN [Suspect]
     Indication: ARRHYTHMIA
     Dosage: .125 1/DAY MOUTH
     Route: 048
     Dates: start: 20050730
  2. DIGOXIN [Suspect]
     Indication: ATRIAL FIBRILLATION
     Dosage: .125 1/DAY MOUTH
     Route: 048
     Dates: start: 20050730

REACTIONS (7)
  - ANOREXIA [None]
  - ASTHENIA [None]
  - DIZZINESS [None]
  - FATIGUE [None]
  - HEART RATE INCREASED [None]
  - NOCTURIA [None]
  - SLEEP DISORDER [None]
